FAERS Safety Report 10761701 (Version 3)
Quarter: 2016Q3

REPORT INFORMATION
  Report Type: Report from Study
  Country: US (occurrence: US)
  Receive Date: 20150204
  Receipt Date: 20160912
  Transmission Date: 20161109
  Serious: Yes (Other)
  Sender: FDA-Public Use
  Company Number: US-SA-2015SA005563

PATIENT
  Age: 51 Year
  Sex: Female

DRUGS (2)
  1. LEMTRADA [Suspect]
     Active Substance: ALEMTUZUMAB
     Indication: MULTIPLE SCLEROSIS RELAPSE
     Route: 041
     Dates: start: 20150105, end: 20150109
  2. LEMTRADA [Suspect]
     Active Substance: ALEMTUZUMAB
     Indication: MULTIPLE SCLEROSIS RELAPSE
     Route: 041
     Dates: start: 201601

REACTIONS (8)
  - Fatigue [Unknown]
  - Erythema [Unknown]
  - Spinal column stenosis [Unknown]
  - Ephelides [Unknown]
  - Asthenia [Unknown]
  - Intervertebral disc protrusion [Unknown]
  - Eye haemorrhage [Unknown]
  - Back disorder [Unknown]

NARRATIVE: CASE EVENT DATE: 2015
